FAERS Safety Report 17749651 (Version 3)
Quarter: 2025Q3

REPORT INFORMATION
  Report Type: Spontaneous
  Country: ZA (occurrence: ZA)
  Receive Date: 20200506
  Receipt Date: 20250707
  Transmission Date: 20251020
  Serious: Yes (Other)
  Sender: AMGEN
  Company Number: ZA-PFIZER INC-2018108561

PATIENT
  Age: 35 Year
  Sex: Female
  Weight: 117 kg

DRUGS (3)
  1. ENBREL [Suspect]
     Active Substance: ETANERCEPT
     Indication: Rheumatoid arthritis
     Dosage: 50 MG, WEEKLY
     Route: 058
     Dates: start: 20171012
  2. METHOTREXATE [Concomitant]
     Active Substance: METHOTREXATE
     Dosage: 15 MG, WEEKLY
     Dates: start: 20151001
  3. ARAVA [Concomitant]
     Active Substance: LEFLUNOMIDE
     Dosage: 20 MG, DAILY
     Dates: start: 20160101

REACTIONS (26)
  - Blood creatinine increased [Unknown]
  - Therapeutic product effect incomplete [Unknown]
  - Red blood cell hypochromic morphology present [Unknown]
  - Leukocytosis [Not Recovered/Not Resolved]
  - Iron deficiency [Unknown]
  - Mean cell haemoglobin concentration decreased [Not Recovered/Not Resolved]
  - Urinary sediment present [Unknown]
  - Fungal test positive [Unknown]
  - Neutrophil count increased [Not Recovered/Not Resolved]
  - Eosinophil count increased [Not Recovered/Not Resolved]
  - Anion gap decreased [Unknown]
  - Mean cell volume decreased [Recovered/Resolved]
  - Mean cell haemoglobin decreased [Not Recovered/Not Resolved]
  - C-reactive protein increased [Not Recovered/Not Resolved]
  - Blood bicarbonate decreased [Recovered/Resolved]
  - Haematocrit increased [Recovered/Resolved]
  - Oxygen saturation decreased [Unknown]
  - Serum ferritin increased [Unknown]
  - Red blood cell sedimentation rate increased [Unknown]
  - Red blood cell count increased [Unknown]
  - Blood alkaline phosphatase increased [Unknown]
  - International normalised ratio increased [Unknown]
  - Drug ineffective [Unknown]
  - White blood cell count increased [Recovered/Resolved]
  - Alanine aminotransferase decreased [Recovered/Resolved]
  - Aspartate aminotransferase increased [Unknown]

NARRATIVE: CASE EVENT DATE: 20171031
